FAERS Safety Report 13798801 (Version 1)
Quarter: 2017Q3

REPORT INFORMATION
  Report Type: Spontaneous
  Country: US (occurrence: US)
  Receive Date: 20170727
  Receipt Date: 20170727
  Transmission Date: 20171127
  Serious: No
  Sender: FDA-Public Use
  Company Number: US-JNJFOC-20170706505

PATIENT
  Age: 5 Decade
  Sex: Female

DRUGS (5)
  1. ROGAINE [Suspect]
     Active Substance: MINOXIDIL
     Route: 061
  2. ROGAINE [Suspect]
     Active Substance: MINOXIDIL
     Indication: ALOPECIA
     Dosage: 1/2 CAPFUL
     Route: 061
  3. VITAMIN D [Concomitant]
     Active Substance: CHOLECALCIFEROL
     Indication: MOOD SWINGS
     Dosage: 3YEARS
     Route: 065
  4. VITAMIN B12 [Concomitant]
     Active Substance: CYANOCOBALAMIN
     Indication: MOOD SWINGS
     Dosage: UNKNOWN/1XPERDAYFROM 1 YEAR
     Route: 065
  5. FISH OIL [Concomitant]
     Active Substance: FISH OIL
     Indication: ROUTINE HEALTH MAINTENANCE
     Dosage: UNKNOWN/1XPERDAY??FROM 4YEARS
     Route: 065

REACTIONS (2)
  - Drug effect incomplete [Unknown]
  - Alopecia [Not Recovered/Not Resolved]
